FAERS Safety Report 8073839-1 (Version None)
Quarter: 2012Q1

REPORT INFORMATION
  Report Type: 
  Country: None (occurrence: None)
  Receive Date: 20120126
  Receipt Date: 20120121
  Transmission Date: 20120608
  Serious: No
  Sender: FDA-Public Use
  Company Number: US-PFIZER INC-2012017725

PATIENT
  Sex: Male

DRUGS (5)
  1. CALCIUM CITRATE [Concomitant]
     Dosage: UNK
  2. ATORVASTATIN CALCIUM [Suspect]
     Indication: BLOOD CHOLESTEROL INCREASED
     Dosage: 40 MG, DAILY
     Dates: start: 20111201
  3. ATENOLOL [Concomitant]
     Dosage: UNK
  4. SIMVASTATIN [Concomitant]
     Dosage: UNK
  5. FINASTERIDE [Concomitant]
     Dosage: UNK

REACTIONS (2)
  - PAIN IN EXTREMITY [None]
  - NECK PAIN [None]
